FAERS Safety Report 7990406 (Version 2)
Quarter: 2015Q4

REPORT INFORMATION
  Report Type: Report from Study
  Country: US (occurrence: US)
  Receive Date: 20110614
  Receipt Date: 20151204
  Transmission Date: 20160305
  Serious: Yes (Life-Threatening, Hospitalization)
  Sender: FDA-Public Use
  Company Number: US-ROCHE-781844

PATIENT
  Age: 49 Year
  Sex: Female

DRUGS (9)
  1. PACLITAXEL. [Suspect]
     Active Substance: PACLITAXEL
     Indication: OVARIAN CANCER
     Dosage: OVER 1 HR ON DAYS 1, 8 AND 15.
     Route: 042
     Dates: start: 20091208
  2. CARBOPLATIN. [Suspect]
     Active Substance: CARBOPLATIN
     Indication: FALLOPIAN TUBE CANCER
  3. BEVACIZUMAB [Suspect]
     Active Substance: BEVACIZUMAB
     Indication: OVARIAN CANCER
     Dosage: OVER 30-90 MIN ON DAY 1 (DATE OF LAST ADMINISTRATION PRIOR TO SAE: 16/FEB/2010, 20/JUL/2010)
     Route: 042
     Dates: start: 20091208
  4. CARBOPLATIN. [Suspect]
     Active Substance: CARBOPLATIN
     Indication: MALIGNANT PERITONEAL NEOPLASM
  5. BEVACIZUMAB [Suspect]
     Active Substance: BEVACIZUMAB
     Indication: FALLOPIAN TUBE CANCER
  6. PACLITAXEL. [Suspect]
     Active Substance: PACLITAXEL
     Indication: MALIGNANT PERITONEAL NEOPLASM
  7. CARBOPLATIN. [Suspect]
     Active Substance: CARBOPLATIN
     Indication: OVARIAN CANCER
     Dosage: AUC 6  ON DAY 1
     Route: 042
     Dates: start: 20091208
  8. BEVACIZUMAB [Suspect]
     Active Substance: BEVACIZUMAB
     Indication: MALIGNANT PERITONEAL NEOPLASM
  9. PACLITAXEL. [Suspect]
     Active Substance: PACLITAXEL
     Indication: FALLOPIAN TUBE CANCER

REACTIONS (22)
  - Blood creatinine increased [Unknown]
  - Vision blurred [Unknown]
  - Nausea [Recovered/Resolved]
  - Anaemia [Recovered/Resolved]
  - Oedema peripheral [Unknown]
  - Diarrhoea [Recovered/Resolved]
  - Urinary tract pain [Recovered/Resolved]
  - Anaemia [Recovered/Resolved]
  - Gastric haemorrhage [Recovered/Resolved]
  - Dyspnoea [Recovered/Resolved]
  - Haemoglobin decreased [Unknown]
  - Dizziness [Recovered/Resolved]
  - Proteinuria [Unknown]
  - Lethargy [Recovered/Resolved]
  - Neutrophil count decreased [Recovered/Resolved]
  - Dyspnoea [Unknown]
  - Hypertension [Unknown]
  - Headache [Unknown]
  - Gastric ulcer [Recovered/Resolved]
  - Hypotension [Recovered/Resolved]
  - Renal neoplasm [Recovered/Resolved]
  - Sinus tachycardia [Recovered/Resolved]

NARRATIVE: CASE EVENT DATE: 20100202
